FAERS Safety Report 7486886-5 (Version None)
Quarter: 2011Q2

REPORT INFORMATION
  Report Type: 
  Country: None (occurrence: None)
  Receive Date: 20110517
  Receipt Date: 20110512
  Transmission Date: 20111010
  Serious: Yes (Hospitalization)
  Sender: FDA-Public Use
  Company Number: US-GILEAD-2011-0038970

PATIENT
  Sex: Female
  Weight: 94.886 kg

DRUGS (24)
  1. PREDNISONE [Concomitant]
  2. OMEPRAZOLE [Concomitant]
  3. CALCIUM CARBONATE [Concomitant]
  4. WARFARIN SODIUM [Concomitant]
  5. ZALEPLON [Concomitant]
  6. LETAIRIS [Suspect]
     Indication: PULMONARY FIBROSIS
  7. OXYCODONE HCL [Concomitant]
  8. ALBUTEROL SULFATE AND IPRATROPIUM BROMIDE [Concomitant]
  9. XOPENEX [Concomitant]
  10. MUCINEX DM [Concomitant]
  11. ALPRAZOLAM [Concomitant]
  12. PLAVIX [Concomitant]
  13. RANEXA [Concomitant]
  14. FUROSEMIDE [Concomitant]
  15. OXYCONTIN [Concomitant]
  16. LEVOXYL [Concomitant]
  17. LETAIRIS [Suspect]
     Indication: PULMONARY HYPERTENSION
     Route: 048
     Dates: start: 20101028
  18. VITAMIN B COMPLEX CAP [Concomitant]
  19. FOLIC ACID [Concomitant]
  20. EFFEXOR [Concomitant]
  21. ACETEALSESTINE [Concomitant]
  22. CLOTRIMAZOLE [Concomitant]
  23. ACIDOPHILUS [Concomitant]
  24. VITAMIN D [Concomitant]

REACTIONS (2)
  - CARDIAC FAILURE CONGESTIVE [None]
  - RESPIRATORY FAILURE [None]
